FAERS Safety Report 16249327 (Version 3)
Quarter: 2024Q4

REPORT INFORMATION
  Report Type: Spontaneous
  Country: GB (occurrence: GB)
  Receive Date: 20190429
  Receipt Date: 20241106
  Transmission Date: 20250115
  Serious: Yes (Other)
  Sender: ACCORD
  Company Number: None

PATIENT
  Age: 87 Year
  Sex: Female
  Weight: 49 kg

DRUGS (10)
  1. DONEPEZIL HYDROCHLORIDE [Suspect]
     Active Substance: DONEPEZIL HYDROCHLORIDE
     Indication: Mixed dementia
     Route: 048
     Dates: start: 20180301, end: 20190201
  2. FOLIC ACID [Concomitant]
     Active Substance: FOLIC ACID
  3. BISOPROLOL FUMARATE [Concomitant]
     Active Substance: BISOPROLOL FUMARATE
  4. PROLIA [Concomitant]
     Active Substance: DENOSUMAB
  5. NITROFURANTOIN [Concomitant]
     Active Substance: NITROFURANTOIN
  6. CHOLECALCIFEROL [Concomitant]
     Active Substance: CHOLECALCIFEROL
  7. MIRTAZAPINE [Concomitant]
     Active Substance: MIRTAZAPINE
  8. MEMANTINE HYDROCHLORIDE [Concomitant]
     Active Substance: MEMANTINE HYDROCHLORIDE
  9. ASPIRIN [Concomitant]
     Active Substance: ASPIRIN
  10. ASPIRIN [Concomitant]
     Active Substance: ASPIRIN

REACTIONS (1)
  - Salivary hypersecretion [Recovered/Resolved]

NARRATIVE: CASE EVENT DATE: 20181001
